FAERS Safety Report 5498602-7 (Version None)
Quarter: 2007Q4

REPORT INFORMATION
  Report Type: 
  Country: None (occurrence: None)
  Receive Date: 20071024
  Receipt Date: 20071017
  Transmission Date: 20080405
  Serious: Yes (Hospitalization)
  Sender: FDA-Public Use
  Company Number: 2007AL004392

PATIENT
  Age: 83 Year
  Sex: Male

DRUGS (2)
  1. GABAPENTIN [Suspect]
     Indication: NEUROPATHY
     Dosage: 600 MG; QID; PO
     Route: 048
     Dates: start: 20070101, end: 20070401
  2. THYROID MEDICATIONS [Concomitant]

REACTIONS (6)
  - ASTHENIA [None]
  - BALANCE DISORDER [None]
  - BLOOD ELECTROLYTES DECREASED [None]
  - BLOOD SODIUM DECREASED [None]
  - PAIN [None]
  - WEIGHT DECREASED [None]
